FAERS Safety Report 9265527 (Version 1)
Quarter: 2013Q2

REPORT INFORMATION
  Report Type: Spontaneous
  Country: US (occurrence: US)
  Receive Date: 20130501
  Receipt Date: 20130501
  Transmission Date: 20140414
  Serious: Yes (Other)
  Sender: FDA-Public Use
  Company Number: US-BAYER-2013-051431

PATIENT
  Age: 76 Year
  Sex: 0
  Weight: 84 kg

DRUGS (8)
  1. ALEVE CAPLET [Suspect]
     Indication: BACK PAIN
     Dosage: 2 UNK, UNK
     Route: 048
  2. ALEVE CAPLET [Suspect]
     Indication: BACK PAIN
     Dosage: 2 DF, QD
     Route: 048
  3. ATENOLOL [Concomitant]
  4. LISINOPRIL [Concomitant]
  5. PANTOPRAZOLE [Concomitant]
  6. TYLENOL [PARACETAMOL] [Concomitant]
  7. TRAMADOL [Concomitant]
  8. BABY ASPIRIN [Concomitant]

REACTIONS (2)
  - Gastritis [Not Recovered/Not Resolved]
  - Abdominal pain upper [Not Recovered/Not Resolved]
